FAERS Safety Report 20626921 (Version 1)
Quarter: 2022Q1

REPORT INFORMATION
  Report Type: Spontaneous
  Country: US (occurrence: US)
  Receive Date: 20220323
  Receipt Date: 20220323
  Transmission Date: 20220424
  Serious: Yes (Other)
  Sender: FDA-Public Use
  Company Number: US-ELI_LILLY_AND_COMPANY-US202203005788

PATIENT
  Sex: Male

DRUGS (4)
  1. HUMULIN R [Suspect]
     Active Substance: INSULIN HUMAN
     Indication: Type 2 diabetes mellitus
     Dosage: UNK UNK, UNKNOWN
     Route: 065
     Dates: start: 2020
  2. HUMULIN R [Suspect]
     Active Substance: INSULIN HUMAN
     Dosage: 20 U, BID (10-20 UNITS)
     Route: 065
  3. HUMULIN R [Suspect]
     Active Substance: INSULIN HUMAN
     Dosage: 60 U, BID
     Route: 065
     Dates: start: 202112
  4. HUMULIN R [Suspect]
     Active Substance: INSULIN HUMAN
     Dosage: 90 U, BID (84-86 UNITS UPTO 90 UNITS)
     Route: 065

REACTIONS (10)
  - Cardiac failure congestive [Unknown]
  - Blood pressure increased [Unknown]
  - Blood cholesterol increased [Unknown]
  - Weight increased [Unknown]
  - Insulin resistance [Unknown]
  - Pruritus [Unknown]
  - Oedema peripheral [Unknown]
  - Localised oedema [Unknown]
  - Blood glucose increased [Unknown]
  - Drug ineffective [Unknown]
